FAERS Safety Report 8592185-0 (Version None)
Quarter: 2012Q3

REPORT INFORMATION
  Report Type: 
  Country: None (occurrence: None)
  Receive Date: 20120814
  Receipt Date: 20120808
  Transmission Date: 20120928
  Serious: Yes (Other)
  Sender: FDA-Public Use
  Company Number: US-AMGEN-USASP2011045971

PATIENT
  Age: 54 Year
  Sex: Female
  Weight: 92.517 kg

DRUGS (5)
  1. METHOTREXATE [Concomitant]
     Dosage: UNK
  2. PREDNISONE TAB [Concomitant]
     Dosage: UNK
  3. ENBREL [Suspect]
     Indication: RHEUMATOID ARTHRITIS
     Dosage: UNK
     Dates: start: 20090101, end: 20110601
  4. LEFLUNOMIDE [Concomitant]
     Indication: UVEITIS
     Dosage: UNK
     Dates: end: 20111121
  5. HUMIRA [Concomitant]
     Indication: RHEUMATOID ARTHRITIS
     Dosage: 40 MG/0.8ML  Q2WK
     Dates: start: 20070101

REACTIONS (13)
  - WEIGHT DECREASED [None]
  - RHEUMATOID ARTHRITIS [None]
  - EYE INFECTION [None]
  - WEIGHT INCREASED [None]
  - INJECTION SITE EXTRAVASATION [None]
  - UVEITIS [None]
  - CATARACT [None]
  - INJECTION SITE SWELLING [None]
  - GLAUCOMA [None]
  - VISUAL IMPAIRMENT [None]
  - INTRAOCULAR PRESSURE INCREASED [None]
  - MOBILITY DECREASED [None]
  - DRUG INEFFECTIVE [None]
